FAERS Safety Report 6641846-9 (Version None)
Quarter: 2010Q1

REPORT INFORMATION
  Report Type: 
  Country: None (occurrence: None)
  Receive Date: 20100319
  Receipt Date: 20100129
  Transmission Date: 20100710
  Serious: No
  Sender: FDA-Public Use
  Company Number: US-JNJFOC-20100200906

PATIENT
  Age: 78 Year
  Sex: Female
  Weight: 72.58 kg

DRUGS (9)
  1. INVEGA [Suspect]
     Indication: SCHIZOPHRENIA
     Route: 048
  2. PHENYTEK [Concomitant]
     Indication: CONVULSION
  3. HYDROCHLOROTHIAZIDE [Concomitant]
     Indication: BLOOD PRESSURE
  4. FOLIC ACID [Concomitant]
     Indication: VITAMIN SUPPLEMENTATION
     Route: 048
  5. METOPROLOL TARTRATE [Concomitant]
     Indication: BLOOD PRESSURE
  6. ZOLOFT [Concomitant]
     Indication: MOOD SWINGS
     Route: 048
  7. LISINOPRIL [Concomitant]
     Indication: BLOOD PRESSURE
  8. GLIMEPIRIDE [Concomitant]
     Indication: DIABETES MELLITUS
  9. AMBIEN [Concomitant]
     Indication: SLEEP DISORDER

REACTIONS (2)
  - DRUG INEFFECTIVE [None]
  - HALLUCINATION, AUDITORY [None]
